FAERS Safety Report 18916389 (Version 1)
Quarter: 2021Q1

REPORT INFORMATION
  Report Type: Other
  Country: JP (occurrence: JP)
  Receive Date: 20210219
  Receipt Date: 20210219
  Transmission Date: 20210420
  Serious: Yes (Hospitalization)
  Sender: FDA-Public Use
  Company Number: JP-B.BRAUN MEDICAL INC.-2107040

PATIENT
  Age: 45 Year
  Sex: Male

DRUGS (1)
  1. LIDOCAINE HYDROCHLORIDE AND DEXTROSE [Suspect]
     Active Substance: DEXTROSE\LIDOCAINE HYDROCHLORIDE
     Route: 042

REACTIONS (1)
  - Drug ineffective [None]
